FAERS Safety Report 6746630-3 (Version None)
Quarter: 2010Q2

REPORT INFORMATION
  Report Type: 
  Country: None (occurrence: None)
  Receive Date: 20100528
  Receipt Date: 20100222
  Transmission Date: 20101027
  Serious: No
  Sender: FDA-Public Use
  Company Number: US-ASTRAZENECA-2010SE08257

PATIENT
  Sex: Female

DRUGS (2)
  1. PRILOSEC OTC [Suspect]
     Indication: GASTROOESOPHAGEAL REFLUX DISEASE
     Route: 048
     Dates: start: 20100220, end: 20100220
  2. CARAFATE [Concomitant]
     Dosage: UNKNOWN

REACTIONS (2)
  - CHEST PAIN [None]
  - DYSPNOEA [None]
